FAERS Safety Report 7409010-3 (Version None)
Quarter: 2011Q2

REPORT INFORMATION
  Report Type: 
  Country: None (occurrence: None)
  Receive Date: 20110412
  Receipt Date: 20110408
  Transmission Date: 20111010
  Serious: Yes (Other)
  Sender: FDA-Public Use
  Company Number: US-PFIZER INC-2006122811

PATIENT
  Sex: Female

DRUGS (4)
  1. NEXIUM [Concomitant]
     Dosage: 40 MG, 1X/DAY
     Route: 048
  2. NIACIN [Concomitant]
     Dosage: UNK
  3. LIPITOR [Suspect]
     Indication: HYPERLIPIDAEMIA
     Dosage: 10MG THEN INCREASED TO 20MG
     Route: 048
     Dates: start: 20040114, end: 20051001
  4. SYNTHROID [Concomitant]
     Indication: HYPOTHYROIDISM
     Dosage: 100 UG, UNK

REACTIONS (7)
  - DISORIENTATION [None]
  - AMNESIA [None]
  - FATIGUE [None]
  - IRRITABILITY [None]
  - COGNITIVE DISORDER [None]
  - NEUROPATHY PERIPHERAL [None]
  - DEPRESSION [None]
